FAERS Safety Report 7820995-3 (Version None)
Quarter: 2011Q4

REPORT INFORMATION
  Report Type: 
  Country: None (occurrence: None)
  Receive Date: 20111018
  Receipt Date: 20111013
  Transmission Date: 20120403
  Serious: Yes (Other)
  Sender: FDA-Public Use
  Company Number: FR-KINGPHARMUSA00001-K201101221

PATIENT
  Sex: Female

DRUGS (2)
  1. ALL OTHER THERAPEUTIC PRODUCTS [Concomitant]
     Dosage: UNK
  2. ALTACE [Suspect]
     Dosage: UNK
     Route: 048

REACTIONS (1)
  - LARGE INTESTINAL ULCER [None]
